FAERS Safety Report 15955578 (Version 2)
Quarter: 2019Q1

REPORT INFORMATION
  Report Type: Report from Study
  Country: DE (occurrence: DE)
  Receive Date: 20190213
  Receipt Date: 20190316
  Transmission Date: 20190417
  Serious: Yes (Other)
  Sender: FDA-Public Use
  Company Number: PHHY2012DE100327

PATIENT
  Age: 20 Year
  Sex: Male

DRUGS (4)
  1. GILENYA [Suspect]
     Active Substance: FINGOLIMOD HYDROCHLORIDE
     Indication: MULTIPLE SCLEROSIS
     Dosage: 0.5 MG, QD
     Route: 048
     Dates: start: 20120619, end: 20131217
  2. GILENYA [Suspect]
     Active Substance: FINGOLIMOD HYDROCHLORIDE
     Dosage: 0.5 MG, QD
     Route: 048
     Dates: start: 20140128
  3. CIALIS [Concomitant]
     Active Substance: TADALAFIL
     Indication: PRODUCT USED FOR UNKNOWN INDICATION
     Dosage: UNK UNK, PRN
     Route: 065
     Dates: start: 20120417
  4. OCTOSTIM [Concomitant]
     Active Substance: DESMOPRESSIN ACETATE
     Indication: PRODUCT USED FOR UNKNOWN INDICATION
     Dosage: UNK UNK, PRN
     Route: 065

REACTIONS (8)
  - Monocytosis [Recovered/Resolved]
  - Lymphopenia [Not Recovered/Not Resolved]
  - Neutrophilia [Not Recovered/Not Resolved]
  - Concomitant disease aggravated [Not Recovered/Not Resolved]
  - Anaemia [Not Recovered/Not Resolved]
  - Hyperbilirubinaemia [Recovered/Resolved]
  - Leukopenia [Not Recovered/Not Resolved]
  - Monocytosis [Not Recovered/Not Resolved]

NARRATIVE: CASE EVENT DATE: 20120710
